FAERS Safety Report 6112242-8 (Version None)
Quarter: 2009Q1

REPORT INFORMATION
  Report Type: 
  Country: None (occurrence: None)
  Receive Date: 20090310
  Receipt Date: 20090303
  Transmission Date: 20090719
  Serious: Yes (Death, Hospitalization)
  Sender: FDA-Public Use
  Company Number: A-US2009-24143

PATIENT

DRUGS (4)
  1. VENTAVIS [Suspect]
     Indication: PULMONARY ARTERIAL HYPERTENSION
     Dosage: UG, 6 X DAY, RESPIRATORY
     Route: 055
  2. DIURETICS [Concomitant]
  3. CALCIUM CHANNEL BLOCKERS [Concomitant]
  4. DIGOXIN [Concomitant]

REACTIONS (3)
  - DYSPNOEA [None]
  - HAEMOPTYSIS [None]
  - PULMONARY ARTERY DILATATION [None]
